FAERS Safety Report 19780060 (Version 1)
Quarter: 2021Q3

REPORT INFORMATION
  Report Type: Spontaneous
  Country: FR (occurrence: FR)
  Receive Date: 20210902
  Receipt Date: 20210902
  Transmission Date: 20211014
  Serious: Yes (Hospitalization, Other)
  Sender: FDA-Public Use
  Company Number: NVSC2021FR196532

PATIENT
  Age: 73 Year
  Sex: Female
  Weight: 54.5 kg

DRUGS (1)
  1. ALPELISIB [Suspect]
     Active Substance: ALPELISIB
     Indication: INVASIVE DUCTAL BREAST CARCINOMA
     Dosage: UNK (300 MG/J AU 29/12/20 PUIS 250 MG/J LE 08/01/21, 200 MG/J LE 29/01/21)
     Route: 048
     Dates: start: 20201229

REACTIONS (3)
  - Hyperglycaemia [Recovering/Resolving]
  - Diarrhoea [Recovering/Resolving]
  - Prerenal failure [Recovering/Resolving]

NARRATIVE: CASE EVENT DATE: 20210104
